FAERS Safety Report 10654037 (Version 1)
Quarter: 2014Q4

REPORT INFORMATION
  Report Type: Spontaneous
  Country: US (occurrence: None)
  Receive Date: 20141215
  Receipt Date: 20141215
  Transmission Date: 20150529
  Serious: Yes (Other)
  Sender: FDA-Public Use
  Company Number: None

PATIENT
  Age: 62 Year

DRUGS (1)
  1. IBUPROFEN. [Suspect]
     Active Substance: IBUPROFEN
     Indication: PAIN
     Route: 048
     Dates: end: 20141202

REACTIONS (3)
  - Haematochezia [None]
  - Abdominal pain upper [None]
  - Gastric disorder [None]

NARRATIVE: CASE EVENT DATE: 20141202
